FAERS Safety Report 5100934-9 (Version None)
Quarter: 2006Q3

REPORT INFORMATION
  Report Type: 
  Country: None (occurrence: None)
  Receive Date: 20060911
  Receipt Date: 20060831
  Transmission Date: 20061208
  Serious: Yes (Other)
  Sender: FDA-Public Use
  Company Number: US-BAYER-200613734BCC

PATIENT
  Age: 74 Year
  Sex: Male
  Weight: 82 kg

DRUGS (2)
  1. ALEVE [Suspect]
     Indication: DRUG USE FOR UNKNOWN INDICATION
     Dosage: TOTAL DAILY DOSE: 440 MG  UNIT DOSE: 220 MG
     Route: 048
     Dates: start: 20060830
  2. LISINOPRIL [Suspect]
     Indication: HYPERTENSION
     Dates: start: 20060830

REACTIONS (3)
  - CEREBROVASCULAR ACCIDENT [None]
  - HYPERHIDROSIS [None]
  - NAUSEA [None]
